FAERS Safety Report 4472972-0 (Version None)
Quarter: 2004Q4

REPORT INFORMATION
  Report Type: 
  Country: None (occurrence: None)
  Receive Date: 20041013
  Receipt Date: 20031119
  Transmission Date: 20050328
  Serious: Yes (Death)
  Sender: FDA-Public Use
  Company Number: JP-MERCK-0311USA02518

PATIENT
  Age: 71 Year
  Sex: Male

DRUGS (2)
  1. PRIMAXIN [Suspect]
     Route: 065
  2. TOBRAMYCIN [Concomitant]
     Route: 065

REACTIONS (5)
  - CELLULITIS [None]
  - EPIDERMOLYSIS [None]
  - MULTI-ORGAN FAILURE [None]
  - RHABDOMYOLYSIS [None]
  - SEPTIC SHOCK [None]
